FAERS Safety Report 23711034 (Version 1)
Quarter: 2024Q2

REPORT INFORMATION
  Report Type: Spontaneous
  Country: GR (occurrence: GR)
  Receive Date: 20240405
  Receipt Date: 20240405
  Transmission Date: 20240715
  Serious: Yes (Death)
  Sender: FDA-Public Use
  Company Number: GR-Merck Healthcare KGaA-2024018477

PATIENT
  Age: 80 Year
  Sex: Female

DRUGS (2)
  1. AVELUMAB [Suspect]
     Active Substance: AVELUMAB
     Indication: Salivary gland cancer
  2. INLYTA [Concomitant]
     Active Substance: AXITINIB
     Indication: Salivary gland cancer

REACTIONS (2)
  - Cardiac arrest [Fatal]
  - Off label use [Unknown]
